FAERS Safety Report 14773472 (Version 1)
Quarter: 2018Q2

REPORT INFORMATION
  Report Type: Report from Study
  Country: FR (occurrence: FR)
  Receive Date: 20180418
  Receipt Date: 20180418
  Transmission Date: 20180711
  Serious: Yes (Death, Life-Threatening, Hospitalization, Other)
  Sender: FDA-Public Use
  Company Number: FR-ACCORD-065561

PATIENT
  Age: 85 Year
  Sex: Female
  Weight: 60 kg

DRUGS (8)
  1. GEMCITABINE [Concomitant]
     Active Substance: GEMCITABINE\GEMCITABINE HYDROCHLORIDE
     Indication: HODGKIN^S DISEASE
     Dates: start: 20160830, end: 20170216
  2. LEVOTHYROXINE. [Suspect]
     Active Substance: LEVOTHYROXINE
     Indication: HYPOTHYROIDISM
  3. RITUXIMAB. [Concomitant]
     Active Substance: RITUXIMAB
     Indication: HODGKIN^S DISEASE
     Dates: start: 20160830, end: 20170216
  4. ONDANSETRON [Suspect]
     Active Substance: ONDANSETRON
     Indication: ANTIBIOTIC THERAPY
  5. KARDEGIC [Suspect]
     Active Substance: ASPIRIN DL-LYSINE
     Indication: PRODUCT USED FOR UNKNOWN INDICATION
  6. OXALIPLATIN. [Concomitant]
     Active Substance: OXALIPLATIN
     Indication: HODGKIN^S DISEASE
     Dates: start: 20160830, end: 20170216
  7. TAZOCILLINE [Suspect]
     Active Substance: PIPERACILLIN SODIUM\TAZOBACTAM SODIUM
     Indication: PRODUCT USED FOR UNKNOWN INDICATION
  8. ADCETRIS [Suspect]
     Active Substance: BRENTUXIMAB VEDOTIN
     Indication: HODGKIN^S DISEASE
     Route: 042
     Dates: start: 20151217, end: 20160330

REACTIONS (12)
  - Rash [Recovered/Resolved]
  - Nausea [Recovered/Resolved]
  - Lung disorder [Fatal]
  - Neuropathy peripheral [Unknown]
  - Hodgkin^s disease [Fatal]
  - Off label use [Unknown]
  - Cardiac murmur [Recovering/Resolving]
  - Toxicity to various agents [Unknown]
  - Vomiting [Recovered/Resolved]
  - Neutropenia [Recovered/Resolved]
  - Cardio-respiratory arrest [Fatal]
  - Abdominal pain [Recovered/Resolved]

NARRATIVE: CASE EVENT DATE: 2016
